FAERS Safety Report 9348642 (Version 1)
Quarter: 2013Q2

REPORT INFORMATION
  Report Type: Spontaneous
  Country: FR (occurrence: FR)
  Receive Date: 20130614
  Receipt Date: 20130614
  Transmission Date: 20140414
  Serious: Yes (Congenital Anomaly)
  Sender: FDA-Public Use
  Company Number: FR-SANOFI-AVENTIS-2013SA058425

PATIENT
  Age: 1 Day
  Sex: Male

DRUGS (2)
  1. RIFATER [Suspect]
     Indication: MATERNAL EXPOSURE TIMING UNSPECIFIED
     Route: 064
     Dates: start: 201006, end: 201008
  2. RIFINAH [Suspect]
     Indication: PRODUCT USED FOR UNKNOWN INDICATION
     Route: 064
     Dates: start: 201008, end: 20100912

REACTIONS (2)
  - Cryptorchism [Recovered/Resolved with Sequelae]
  - Foetal exposure during pregnancy [Unknown]
